FAERS Safety Report 10741718 (Version 3)
Quarter: 2015Q2

REPORT INFORMATION
  Report Type: Report from Study
  Country: GR (occurrence: GR)
  Receive Date: 20150127
  Receipt Date: 20150427
  Transmission Date: 20150821
  Serious: Yes (Hospitalization)
  Sender: FDA-Public Use
  Company Number: GR-ABBVIE-15P-066-1329951-00

PATIENT
  Sex: Male
  Weight: 65 kg

DRUGS (7)
  1. DUODOPA [Suspect]
     Active Substance: CARBIDOPA\LEVODOPA
     Indication: PARKINSON^S DISEASE
     Dosage: MD: 7.5 ML, CR: 4.6 ML/H, ED: 1.8 ML
     Route: 050
     Dates: start: 20140915
  2. DUODART [Concomitant]
     Active Substance: DUTASTERIDE\TAMSULOSIN
     Indication: PROSTATIC DISORDER
  3. EXELON [Concomitant]
     Active Substance: RIVASTIGMINE TARTRATE
     Indication: PRODUCT USED FOR UNKNOWN INDICATION
     Route: 062
  4. DUODOPA [Suspect]
     Active Substance: CARBIDOPA\LEVODOPA
     Dosage: MD: 11.7ML, CONTINUOUS RATE: 4.6 ML/H, ED: 1.8 ML
     Route: 050
  5. GLUCOPHAGE [Concomitant]
     Active Substance: METFORMIN HYDROCHLORIDE
     Indication: DIABETES MELLITUS
     Route: 048
  6. MADOPAR [Concomitant]
     Active Substance: BENSERAZIDE HYDROCHLORIDE\LEVODOPA
     Indication: PARKINSON^S DISEASE
     Dosage: (100+25) MG
     Route: 048
     Dates: start: 20141019
  7. FERRO SANOL DUODENAL [Concomitant]
     Active Substance: FERROUS SULFATE\GLYCINE
     Indication: PRODUCT USED FOR UNKNOWN INDICATION
     Route: 048
     Dates: start: 20141227

REACTIONS (6)
  - Mobility decreased [Not Recovered/Not Resolved]
  - Decubitus ulcer [Recovered/Resolved]
  - Peripheral swelling [Recovering/Resolving]
  - Drug ineffective [Not Recovered/Not Resolved]
  - Spinal pain [Recovering/Resolving]
  - Intervertebral discitis [Recovering/Resolving]
